FAERS Safety Report 19485891 (Version 1)
Quarter: 2021Q3

REPORT INFORMATION
  Report Type: Report from Study
  Country: CN (occurrence: CN)
  Receive Date: 20210702
  Receipt Date: 20210702
  Transmission Date: 20211014
  Serious: Yes (Other)
  Sender: FDA-Public Use
  Company Number: CN-PFIZER INC-2021751060

PATIENT
  Age: 34 Year
  Sex: Male

DRUGS (4)
  1. TIGECYCLINE. [Suspect]
     Active Substance: TIGECYCLINE
     Indication: PNEUMONIA
     Dosage: 100 MG, 2X/DAY (Q12H)
  2. CEFOPERAZONE SODIUM AND SULBACTAM SODIUM [Concomitant]
     Active Substance: CEFOPERAZONE SODIUM\SULBACTAM SODIUM
     Indication: ACINETOBACTER INFECTION
     Dosage: 3 G, 3X/DAY
  3. CEFOPERAZONE SODIUM AND SULBACTAM SODIUM [Concomitant]
     Active Substance: CEFOPERAZONE SODIUM\SULBACTAM SODIUM
     Indication: PNEUMONIA
  4. TIGECYCLINE. [Suspect]
     Active Substance: TIGECYCLINE
     Indication: ACINETOBACTER INFECTION
     Dosage: 100 MG, 2X/DAY (Q12H)

REACTIONS (2)
  - Amylase increased [Recovered/Resolved]
  - Lipase increased [Recovered/Resolved]
